FAERS Safety Report 18799620 (Version 3)
Quarter: 2021Q1

REPORT INFORMATION
  Report Type: Spontaneous
  Country: CN (occurrence: CN)
  Receive Date: 20210128
  Receipt Date: 20210203
  Transmission Date: 20210419
  Serious: Yes (Death, Other)
  Sender: FDA-Public Use
  Company Number: CN-PFIZER INC-2021044231

PATIENT
  Age: 55 Year
  Sex: Female

DRUGS (5)
  1. METHYLPREDNISOLONE. [Suspect]
     Active Substance: METHYLPREDNISOLONE
     Dosage: 10 MG, 1X/DAY (REDUCED)
     Route: 048
  2. METHYLPREDNISOLONE. [Suspect]
     Active Substance: METHYLPREDNISOLONE
     Dosage: 40 MG, 1X/DAY
     Route: 042
  3. AMIKACIN. [Concomitant]
     Active Substance: AMIKACIN
     Indication: ANTIBIOTIC THERAPY
     Dosage: 0.4 G, 2X/DAY
  4. METHYLPREDNISOLONE. [Suspect]
     Active Substance: METHYLPREDNISOLONE
     Indication: SJOGREN^S SYNDROME
     Dosage: 24 MG, 1X/DAY
     Route: 048
  5. MEROPENEM. [Concomitant]
     Active Substance: MEROPENEM
     Indication: ANTIBIOTIC THERAPY
     Dosage: 2 G, 3X/DAY

REACTIONS (10)
  - Brain abscess [Unknown]
  - Ear infection [Unknown]
  - Klebsiella infection [Fatal]
  - Bacteraemia [Unknown]
  - Pneumonia [Unknown]
  - Central nervous system infection [Unknown]
  - Loss of consciousness [Unknown]
  - Meningitis [Unknown]
  - Otitis media acute [Unknown]
  - Mastoiditis [Unknown]
